FAERS Safety Report 7600782-1 (Version None)
Quarter: 2011Q3

REPORT INFORMATION
  Report Type: 
  Country: None (occurrence: None)
  Receive Date: 20110711
  Receipt Date: 20110706
  Transmission Date: 20111222
  Serious: Yes (Death)
  Sender: FDA-Public Use
  Company Number: US-PFIZER INC-2011153070

PATIENT
  Sex: Male

DRUGS (1)
  1. RAPAMUNE [Suspect]
     Indication: RENAL TRANSPLANT
     Dosage: 3-1MG DAILY

REACTIONS (1)
  - DEATH [None]
